FAERS Safety Report 12464745 (Version 1)
Quarter: 2016Q2

REPORT INFORMATION
  Report Type: Spontaneous
  Country: US (occurrence: None)
  Receive Date: 20160613
  Receipt Date: 20160613
  Transmission Date: 20160815
  Serious: No
  Sender: FDA-Public Use
  Company Number: None

PATIENT
  Age: 69 Year
  Sex: Male
  Weight: 136.8 kg

DRUGS (1)
  1. LAMOTRIGINE. [Suspect]
     Active Substance: LAMOTRIGINE
     Indication: BIPOLAR I DISORDER
     Route: 048
     Dates: start: 20150922, end: 20160325

REACTIONS (5)
  - Vomiting [None]
  - Gingival pain [None]
  - Headache [None]
  - Nausea [None]
  - Glossodynia [None]

NARRATIVE: CASE EVENT DATE: 20160401
